FAERS Safety Report 7492129-9 (Version None)
Quarter: 2011Q2

REPORT INFORMATION
  Report Type: 
  Country: None (occurrence: None)
  Receive Date: 20110519
  Receipt Date: 20110505
  Transmission Date: 20111010
  Serious: Yes (Other)
  Sender: FDA-Public Use
  Company Number: US-JNJFOC-20110301119

PATIENT
  Sex: Female
  Weight: 52.35 kg

DRUGS (6)
  1. LIALDA [Concomitant]
  2. BUDESONIDE [Concomitant]
  3. REMICADE [Suspect]
     Dosage: 21 WEEKS GESTATIONAL AGE
     Route: 042
     Dates: start: 20101115
  4. REMICADE [Suspect]
     Dosage: 27 WEEKS GESTATIONAL AGE
     Route: 042
     Dates: start: 20101227
  5. REMICADE [Suspect]
     Indication: COLITIS ULCERATIVE
     Dosage: 15 WEEKS GESTATIONAL AGE
     Route: 042
     Dates: start: 20101004
  6. HEMOCYTE C [Concomitant]

REACTIONS (3)
  - DRUG EXPOSURE DURING PREGNANCY [None]
  - PREMATURE LABOUR [None]
  - HYPERTENSION [None]
